FAERS Safety Report 12601520 (Version 1)
Quarter: 2016Q3

REPORT INFORMATION
  Report Type: Spontaneous
  Country: US (occurrence: None)
  Receive Date: 20160727
  Receipt Date: 20160727
  Transmission Date: 20161109
  Serious: No
  Sender: FDA-Public Use
  Company Number: None

PATIENT
  Age: 65 Year
  Sex: Female

DRUGS (1)
  1. PATADAY [Suspect]
     Active Substance: OLOPATADINE HYDROCHLORIDE
     Indication: MULTIPLE ALLERGIES
     Route: 047
     Dates: start: 20160721, end: 20160723

REACTIONS (5)
  - Secretion discharge [None]
  - Vision blurred [None]
  - Glossodynia [None]
  - Dry eye [None]
  - Abdominal discomfort [None]

NARRATIVE: CASE EVENT DATE: 20160722
